FAERS Safety Report 5167622-4 (Version None)
Quarter: 2006Q4

REPORT INFORMATION
  Report Type: 
  Country: None (occurrence: None)
  Receive Date: 20061207
  Receipt Date: 20061127
  Transmission Date: 20070319
  Serious: Yes (Hospitalization)
  Sender: FDA-Public Use
  Company Number: FR-ABBOTT-06P-056-0351615-00

PATIENT
  Age: 79 Year
  Sex: Female

DRUGS (2)
  1. FENOFIBRATE [Suspect]
     Indication: HYPERCHOLESTEROLAEMIA
     Route: 065
     Dates: start: 19920101, end: 19961019
  2. DIURETICS [Concomitant]
     Indication: HYPERTENSION

REACTIONS (1)
  - LUPOID HEPATIC CIRRHOSIS [None]
